FAERS Safety Report 4757487-4 (Version None)
Quarter: 2005Q3

REPORT INFORMATION
  Report Type: 
  Country: None (occurrence: None)
  Receive Date: 20050831
  Receipt Date: 20041001
  Transmission Date: 20060218
  Serious: Yes (Hospitalization, Disabling)
  Sender: FDA-Public Use
  Company Number: DE-MERCK-0410DEU00031

PATIENT
  Age: 45 Year
  Sex: Male

DRUGS (21)
  1. VIOXX [Suspect]
     Indication: INTERVERTEBRAL DISC DISORDER
     Route: 048
     Dates: start: 20010301, end: 20040801
  2. VIOXX [Suspect]
     Indication: INTERVERTEBRAL DISC PROTRUSION
     Route: 048
     Dates: start: 20010301, end: 20040801
  3. OXYCODONE HYDROCHLORIDE [Concomitant]
     Route: 065
     Dates: start: 20020910
  4. TOLPERISONE HYDROCHLORIDE [Concomitant]
     Route: 065
     Dates: start: 20031205
  5. OMEPRAZOLE [Concomitant]
     Route: 065
  6. FLUPIRTINE MALEATE [Concomitant]
     Route: 065
  7. AMITRIPTYLINE HYDROCHLORIDE [Concomitant]
     Route: 048
  8. FENTANYL [Concomitant]
     Route: 048
  9. RANITIDINE HYDROCHLORIDE [Concomitant]
     Route: 048
  10. DIPYRONE [Concomitant]
     Route: 048
  11. SIMVASTATIN [Concomitant]
     Route: 048
  12. NALOXONE HYDROCHLORIDE AND TILIDINE HYDROCHLORIDE [Concomitant]
     Route: 065
     Dates: start: 20020822, end: 20020930
  13. NALOXONE HYDROCHLORIDE AND TILIDINE HYDROCHLORIDE [Concomitant]
     Route: 065
     Dates: start: 20020930
  14. NALOXONE HYDROCHLORIDE AND TILIDINE HYDROCHLORIDE [Concomitant]
     Route: 065
     Dates: start: 20020930
  15. AMITRIPTYLINE HYDROCHLORIDE [Concomitant]
     Route: 065
     Dates: start: 20021001
  16. BUPRENORPHINE HYDROCHLORIDE [Concomitant]
     Route: 065
     Dates: start: 20040223
  17. BUPRENORPHINE HYDROCHLORIDE [Concomitant]
     Route: 065
  18. HYDROMORPHONE HYDROCHLORIDE [Concomitant]
     Route: 065
     Dates: start: 20040329
  19. PROCAINE HYDROCHLORIDE [Concomitant]
     Route: 065
     Dates: start: 20040625
  20. POLYETHYLENE GLYCOL 3350 AND POTASSIUM CHLORIDE AND SODIUM BICARBONATE [Concomitant]
     Route: 065
     Dates: start: 20040715
  21. AMITRIPTYLINE HYDROCHLORIDE [Concomitant]
     Route: 065
     Dates: start: 20040715

REACTIONS (12)
  - ANOREXIA [None]
  - ASTHENIA [None]
  - CARDIOVASCULAR DISORDER [None]
  - CEREBRAL ARTERY OCCLUSION [None]
  - CEREBROVASCULAR ACCIDENT [None]
  - DIZZINESS [None]
  - INFECTION [None]
  - MALAISE [None]
  - NAUSEA [None]
  - OVERDOSE [None]
  - PAIN [None]
  - SLEEP DISORDER [None]
